FAERS Safety Report 7287160-2 (Version None)
Quarter: 2010Q4

REPORT INFORMATION
  Report Type: 
  Country: None (occurrence: None)
  Receive Date: 20101220
  Receipt Date: 20091106
  Transmission Date: 20110411
  Serious: Yes (Hospitalization, Other)
  Sender: FDA-Public Use
  Company Number: A-US2009-26578

PATIENT
  Age: 4 Year
  Sex: Male

DRUGS (7)
  1. ZAVESCA [Suspect]
     Indication: NIEMANN-PICK DISEASE
     Dosage: ORAL
     Route: 048
     Dates: start: 20081023, end: 20090424
  2. TRILEPTAL [Concomitant]
  3. CLORAZEPATE DIPOTASSIUM [Concomitant]
  4. AXID [Concomitant]
  5. PREVACID [Concomitant]
  6. CLARITIN [Concomitant]
  7. RHINOCORT [Concomitant]

REACTIONS (12)
  - ACTIVATED PARTIAL THROMBOPLASTIN TIME PROLONGED [None]
  - BRONCHOSCOPY [None]
  - EAR TUBE REMOVAL [None]
  - GASTROINTESTINAL TUBE INSERTION [None]
  - GASTROOESOPHAGEAL REFLUX DISEASE [None]
  - HAEMORRHAGE [None]
  - LARYNGOSCOPY [None]
  - NASAL POLYPECTOMY [None]
  - OESOPHAGOGASTRIC FUNDOPLASTY [None]
  - SINUS ANTROSTOMY [None]
  - SINUS OPERATION [None]
  - VASCULAR CAUTERISATION [None]
